FAERS Safety Report 10406355 (Version 1)
Quarter: 2014Q3

REPORT INFORMATION
  Report Type: Spontaneous
  Country: US (occurrence: None)
  Receive Date: 20140822
  Receipt Date: 20140822
  Transmission Date: 20150326
  Serious: Yes (Other)
  Sender: FDA-Public Use
  Company Number: None

PATIENT
  Age: 64 Year
  Sex: Male

DRUGS (1)
  1. AFINITOR [Suspect]
     Active Substance: EVEROLIMUS
     Indication: RENAL CANCER
     Dosage: 10MG  QD X 2D OFF ONE D  PO
     Route: 048
     Dates: start: 20140726

REACTIONS (2)
  - Stomatitis [None]
  - Rash [None]

NARRATIVE: CASE EVENT DATE: 20140815
